FAERS Safety Report 4354092-9 (Version None)
Quarter: 2004Q2

REPORT INFORMATION
  Report Type: 
  Country: None (occurrence: None)
  Receive Date: 20040503
  Receipt Date: 20040421
  Transmission Date: 20050107
  Serious: Yes (Other)
  Sender: FDA-Public Use
  Company Number: JP-JNJFOC-20040405437

PATIENT
  Age: 25 Year
  Sex: Female
  Weight: 55 kg

DRUGS (3)
  1. REMICADE [Suspect]
     Indication: CROHN'S DISEASE
     Dosage: 275 MG, 1 IN 1 AS NECESSARY, INTRAVENOUS DRIP
     Route: 042
     Dates: start: 20020826, end: 20020826
  2. REMICADE [Suspect]
     Indication: CROHN'S DISEASE
     Dosage: 275 MG, 1 IN 1 AS NECESSARY, INTRAVENOUS DRIP
     Route: 042
     Dates: start: 20040407, end: 20040407
  3. IVH (PARENTERAL) [Concomitant]

REACTIONS (4)
  - CATHETER RELATED INFECTION [None]
  - DRUG INEFFECTIVE [None]
  - IMMUNE SYSTEM DISORDER [None]
  - SEPSIS [None]
